FAERS Safety Report 11137456 (Version 2)
Quarter: 2015Q2

REPORT INFORMATION
  Report Type: Spontaneous
  Country: US (occurrence: US)
  Receive Date: 20150526
  Receipt Date: 20150618
  Transmission Date: 20150821
  Serious: No
  Sender: FDA-Public Use
  Company Number: US-PFIZER INC-2015174707

PATIENT
  Age: 68 Year
  Sex: Male
  Weight: 110 kg

DRUGS (27)
  1. LESCOL [Concomitant]
     Active Substance: FLUVASTATIN SODIUM
     Indication: RENAL DISORDER
  2. MIDRIN [Concomitant]
     Active Substance: ACETAMINOPHEN\DICHLORALPHENAZONE\ISOMETHEPTENE
     Indication: HEADACHE
     Dosage: 1000-2500MG, AS NEEDED
  3. METFORMIN HCL [Concomitant]
     Active Substance: METFORMIN HYDROCHLORIDE
     Indication: DIABETES MELLITUS
     Dosage: 2500 MG, DAILY
  4. VITAMIN B6 [Concomitant]
     Active Substance: PYRIDOXINE HYDROCHLORIDE
     Dosage: 2000 IU, UNK
  5. MIDRIN [Concomitant]
     Active Substance: ACETAMINOPHEN\DICHLORALPHENAZONE\ISOMETHEPTENE
     Indication: MIGRAINE
  6. SONATA [Concomitant]
     Active Substance: ZALEPLON
     Indication: INSOMNIA
     Dosage: 10 MG, 1X/DAY
  7. TERAZOSIN [Concomitant]
     Active Substance: TERAZOSIN\TERAZOSIN HYDROCHLORIDE
     Indication: URINE FLOW DECREASED
     Dosage: 5 MG, 1X/DAY
  8. CENTRUM SILVER [Concomitant]
     Active Substance: VITAMINS
     Dosage: 1 DF, DAILY
     Route: 048
  9. ACIDOPHILUS [Concomitant]
     Active Substance: LACTOBACILLUS ACIDOPHILUS
     Dosage: 1 DF, DAILY
     Route: 048
  10. FAMOTIDINE. [Concomitant]
     Active Substance: FAMOTIDINE
     Indication: GASTROOESOPHAGEAL REFLUX DISEASE
     Dosage: 40 MG, DAILY
     Route: 048
  11. SKELAXINE [Concomitant]
     Indication: BACK PAIN
     Dosage: UNK, 3X/DAY (EVERY 8 HOURS)
  12. BUPROPION SR [Concomitant]
     Active Substance: BUPROPION
     Dosage: 200 MG, 2X/DAY
     Route: 048
  13. TOPIRAMATE. [Concomitant]
     Active Substance: TOPIRAMATE
     Dosage: 100 MG, 1X/DAY
  14. VITAMIN D3 [Concomitant]
     Active Substance: CHOLECALCIFEROL
     Dosage: 1000 IU, UNK
  15. ECONAZOLE NITRATE. [Concomitant]
     Active Substance: ECONAZOLE NITRATE
     Indication: LOCALISED INFECTION
     Dosage: UNK
  16. CAVERJECT IMPULSE [Suspect]
     Active Substance: ALPROSTADIL
     Indication: ERECTILE DYSFUNCTION
     Dosage: 10 ?G, ALTERNATE DAY
  17. CAVERJECT IMPULSE [Suspect]
     Active Substance: ALPROSTADIL
     Dosage: 10 ?G, AS NEEDED
     Dates: start: 201505
  18. VITAMIN B12 [Concomitant]
     Active Substance: CYANOCOBALAMIN
     Indication: LETHARGY
     Dosage: 10 IU, EVERY OTHER MONDAY MORNING
  19. TESTOTOP [Concomitant]
     Indication: BLOOD TESTOSTERONE ABNORMAL
     Dosage: UNK, EVERY 90 DAYS
     Route: 054
  20. GAVISCON [Concomitant]
     Active Substance: ALUMINUM HYDROXIDE\MAGNESIUM CARBONATE
     Indication: GASTROOESOPHAGEAL REFLUX DISEASE
     Dosage: 3-4 DF, UNK
  21. CAVERJECT IMPULSE [Suspect]
     Active Substance: ALPROSTADIL
     Dosage: 15 ?G, UNK
  22. DEXILANT [Concomitant]
     Active Substance: DEXLANSOPRAZOLE
     Indication: GASTROOESOPHAGEAL REFLUX DISEASE
     Dosage: 60 MG, DAILY
     Route: 048
  23. LODINE [Concomitant]
     Active Substance: ETODOLAC
     Indication: BACK PAIN
     Dosage: 400 MG, 3X/DAY (EVERY 8 HOURS)
  24. METROGEL [Concomitant]
     Active Substance: METRONIDAZOLE
     Indication: ROSACEA
     Dosage: UNK
  25. AVAPRO [Concomitant]
     Active Substance: IRBESARTAN
     Indication: BLOOD PRESSURE ABNORMAL
     Dosage: 75 MG 1/4TABLET, DAILY
     Route: 048
  26. LESCOL [Concomitant]
     Active Substance: FLUVASTATIN SODIUM
     Indication: DIABETES MELLITUS
     Dosage: 80 MG, DAILY
     Route: 048
  27. VICTOZA [Concomitant]
     Active Substance: LIRAGLUTIDE
     Indication: DIABETES MELLITUS
     Dosage: 12-18MG, 1X/ DAY

REACTIONS (3)
  - Intentional product use issue [Unknown]
  - Drug effect incomplete [Unknown]
  - Product quality issue [Unknown]

NARRATIVE: CASE EVENT DATE: 2015
